FAERS Safety Report 23861572 (Version 1)
Quarter: 2024Q2

REPORT INFORMATION
  Report Type: Spontaneous
  Country: SE (occurrence: SE)
  Receive Date: 20240516
  Receipt Date: 20240516
  Transmission Date: 20240716
  Serious: Yes (Hospitalization)
  Sender: FDA-Public Use
  Company Number: SE-ABBVIE-5732516

PATIENT
  Age: 51 Year
  Sex: Female

DRUGS (1)
  1. SKYRIZI [Suspect]
     Active Substance: RISANKIZUMAB-RZAA
     Indication: Psoriasis
     Route: 058

REACTIONS (6)
  - Gastrointestinal disorder [Unknown]
  - Abdominal pain upper [Unknown]
  - Liver disorder [Recovering/Resolving]
  - Nausea [Unknown]
  - Liver disorder [Recovered/Resolved]
  - Hepatitis A [Unknown]

NARRATIVE: CASE EVENT DATE: 20230917
